FAERS Safety Report 5010853-4 (Version None)
Quarter: 2006Q2

REPORT INFORMATION
  Report Type: 
  Country: None (occurrence: None)
  Receive Date: 20060525
  Receipt Date: 20060418
  Transmission Date: 20061013
  Serious: Yes (Congenital Anomaly)
  Sender: FDA-Public Use
  Company Number: PL-GLAXOSMITHKLINE-B0421605A

PATIENT

DRUGS (1)
  1. ZENTEL [Suspect]
     Indication: ASCARIASIS
     Dosage: 400MG PER DAY
     Route: 048
     Dates: start: 20060314, end: 20060314

REACTIONS (2)
  - DRUG EXPOSURE DURING PREGNANCY [None]
  - LIMB REDUCTION DEFECT [None]
